FAERS Safety Report 6479521-6 (Version None)
Quarter: 2009Q4

REPORT INFORMATION
  Report Type: 
  Country: None (occurrence: None)
  Receive Date: 20091207
  Receipt Date: 20091207
  Transmission Date: 20100525
  Serious: Yes (Disabling)
  Sender: FDA-Public Use
  Company Number: None

PATIENT
  Age: 25 Year
  Sex: Female

DRUGS (2)
  1. MORPHINE [Suspect]
     Indication: HEADACHE
     Dosage: 6MG PRN IV BOLUS
     Route: 040
  2. MORPHINE [Suspect]
     Indication: SHUNT MALFUNCTION
     Dosage: 6MG PRN IV BOLUS
     Route: 040

REACTIONS (6)
  - APNOEA [None]
  - DYSPNOEA [None]
  - HEADACHE [None]
  - RASH ERYTHEMATOUS [None]
  - SWOLLEN TONGUE [None]
  - UNRESPONSIVE TO STIMULI [None]
